FAERS Safety Report 18716424 (Version 1)
Quarter: 2021Q1

REPORT INFORMATION
  Report Type: Spontaneous
  Country: US (occurrence: US)
  Receive Date: 20210107
  Receipt Date: 20210107
  Transmission Date: 20210419
  Serious: Yes (Hospitalization)
  Sender: FDA-Public Use
  Company Number: None

PATIENT
  Age: 64 Year
  Sex: Male

DRUGS (1)
  1. OLANZAPINE. [Suspect]
     Active Substance: OLANZAPINE
     Indication: AGITATION
     Route: 048
     Dates: start: 20200523, end: 20200523

REACTIONS (4)
  - Blood creatine phosphokinase increased [None]
  - Tremor [None]
  - Confusional state [None]
  - Pyrexia [None]

NARRATIVE: CASE EVENT DATE: 20200529
